FAERS Safety Report 11361910 (Version 2)
Quarter: 2016Q1

REPORT INFORMATION
  Report Type: Spontaneous
  Country: BG (occurrence: BG)
  Receive Date: 20150810
  Receipt Date: 20160323
  Transmission Date: 20160525
  Serious: Yes (Other)
  Sender: FDA-Public Use
  Company Number: BG-ABBVIE-15P-022-1434417-00

PATIENT
  Age: 76 Year
  Sex: Male

DRUGS (6)
  1. EXVIERA [Suspect]
     Active Substance: DASABUVIR
     Indication: HEPATITIS C
     Route: 048
     Dates: start: 201501
  2. TAMSULOSIN [Concomitant]
     Active Substance: TAMSULOSIN
  3. INSULIN [Concomitant]
     Active Substance: INSULIN NOS
     Indication: TYPE 2 DIABETES MELLITUS
     Dates: start: 2008
  4. TAMSULOSIN [Concomitant]
     Active Substance: TAMSULOSIN
     Indication: BENIGN PROSTATIC HYPERPLASIA
     Dosage: DISCONTINUED PRIOR TO HCV THERAPY
     Dates: start: 2011
  5. RIBAVIRIN. [Suspect]
     Active Substance: RIBAVIRIN
     Indication: HEPATITIS C
     Route: 048
     Dates: start: 201501
  6. VIEKIRAX [Suspect]
     Active Substance: OMBITASVIR\PARITAPREVIR\RITONAVIR
     Indication: HEPATITIS C
     Route: 048
     Dates: start: 201501

REACTIONS (6)
  - Prothrombin time prolonged [Recovered/Resolved]
  - Hyperbilirubinaemia [Recovered/Resolved]
  - Dysuria [Recovered/Resolved]
  - Alanine aminotransferase increased [Recovered/Resolved]
  - Urinary tract infection [Recovered/Resolved]
  - Total bile acids increased [Recovered/Resolved]
